FAERS Safety Report 9195108 (Version 1)
Quarter: 2013Q1

REPORT INFORMATION
  Report Type: Spontaneous
  Country: US (occurrence: US)
  Receive Date: 20130328
  Receipt Date: 20130328
  Transmission Date: 20140127
  Serious: No
  Sender: FDA-Public Use
  Company Number: US-ALLERGAN-1214273US

PATIENT
  Age: 62 Year
  Sex: Female

DRUGS (5)
  1. LATISSE 0.03% [Suspect]
     Indication: GROWTH OF EYELASHES
     Dosage: 1 GTT, QHS
     Route: 061
     Dates: start: 201111
  2. LATISSE 0.03% [Suspect]
     Dosage: 1 GTT, QAM
     Route: 061
     Dates: start: 201110
  3. INSULIN [Concomitant]
     Indication: DIABETES MELLITUS
     Dosage: UNK
  4. BLOOD PLEASURE PILLS [Concomitant]
     Indication: BLOOD PRESSURE
  5. CHOLESTEROL PILLS [Concomitant]
     Indication: BLOOD CHOLESTEROL

REACTIONS (9)
  - Inappropriate schedule of drug administration [Unknown]
  - Wrong technique in drug usage process [Unknown]
  - Drug administered at inappropriate site [Unknown]
  - Eyelash discolouration [Not Recovered/Not Resolved]
  - Madarosis [Not Recovered/Not Resolved]
  - Eye pruritus [Not Recovered/Not Resolved]
  - Eyelids pruritus [Not Recovered/Not Resolved]
  - Hair growth abnormal [Not Recovered/Not Resolved]
  - Erythema of eyelid [Not Recovered/Not Resolved]
